FAERS Safety Report 5796903-6 (Version None)
Quarter: 2008Q3

REPORT INFORMATION
  Report Type: 
  Country: None (occurrence: None)
  Receive Date: 20080701
  Receipt Date: 20080619
  Transmission Date: 20090109
  Serious: Yes (Life-Threatening, Hospitalization)
  Sender: FDA-Public Use
  Company Number: US-WYE-H03870008

PATIENT
  Sex: Female
  Weight: 53 kg

DRUGS (12)
  1. TEMSIROLIMUS [Suspect]
     Indication: COLORECTAL CANCER
     Route: 042
     Dates: start: 20071114, end: 20080123
  2. TEMSIROLIMUS [Suspect]
     Route: 042
     Dates: start: 20080213, end: 20080220
  3. AMBIEN [Concomitant]
     Dosage: NOT PROVIDED
     Dates: start: 20080326
  4. ATIVAN [Concomitant]
     Dosage: NOT PROVIDED
     Dates: start: 20080319
  5. PRILOSEC [Concomitant]
     Dosage: NOT PROVIDED
     Dates: start: 20071114
  6. IMODIUM [Concomitant]
     Dosage: NOT PROVIDED
     Dates: start: 20080319
  7. KEFLEX [Concomitant]
     Dosage: NOT PROVIDED
     Dates: start: 20080402
  8. LUNESTA [Concomitant]
     Dosage: NOT PROVIDED
     Dates: start: 20071011
  9. PERIDEX [Concomitant]
     Dosage: NOT PROVIDED
     Dates: start: 20071121
  10. CETUXIMAB [Suspect]
     Indication: COLORECTAL CANCER
     Route: 042
     Dates: start: 20071107, end: 20071107
  11. CETUXIMAB [Suspect]
     Route: 042
     Dates: start: 20071114, end: 20080220
  12. DECADRON [Concomitant]
     Dosage: NOT PROVIDED
     Dates: start: 20080326

REACTIONS (4)
  - BLINDNESS [None]
  - CONVULSION [None]
  - RETINAL ARTERY OCCLUSION [None]
  - TRANSIENT ISCHAEMIC ATTACK [None]
